FAERS Safety Report 19800053 (Version 1)
Quarter: 2021Q3

REPORT INFORMATION
  Report Type: Spontaneous
  Country: DE (occurrence: DE)
  Receive Date: 20210907
  Receipt Date: 20210907
  Transmission Date: 20211014
  Serious: Yes (Hospitalization)
  Sender: FDA-Public Use
  Company Number: DE-MYLANLABS-2021M1058492

PATIENT
  Age: 77 Year
  Sex: Male
  Weight: 95 kg

DRUGS (17)
  1. ZYTIGA [Suspect]
     Active Substance: ABIRATERONE ACETATE
     Indication: PRODUCT USED FOR UNKNOWN INDICATION
     Dosage: 500 MILLIGRAM (500 MG, 2?0?0?0, TABLETTEN)
  2. ARANESP [Concomitant]
     Active Substance: DARBEPOETIN ALFA
     Dosage: 40 MG / WOCHE, 1 X DIENSTAGS, FERTIGSPRITZEN
     Route: 058
  3. CANDESARTAN. [Concomitant]
     Active Substance: CANDESARTAN
     Dosage: 16 MILLIGRAM (16 MG, 1?0?1?0, TABLETTEN)
  4. MACROGOL [Concomitant]
     Active Substance: POLYETHYLENE GLYCOLS
     Dosage: 1?1?0?0, PULVER
  5. METOPROLOL. [Concomitant]
     Active Substance: METOPROLOL
     Dosage: 23.75 MILLIGRAM (23.75 MG, 1?0?1?0)
  6. METAMIZOL                          /06276701/ [Concomitant]
     Active Substance: METAMIZOLE
     Dosage: 40?40?40?40, TROPFEN
  7. LEUPRONE HEXAL [Suspect]
     Active Substance: LEUPROLIDE ACETATE
     Indication: PRODUCT USED FOR UNKNOWN INDICATION
     Dosage: 5 MILLIGRAM, Q3MONTHS (5 MG/EVERY 3 MONTHS, 1X EVERY 3 MONTHS, PRE?FILLED SYRINGES)
     Route: 058
  8. DEKRISTOL [Concomitant]
     Active Substance: CHOLECALCIFEROL
     Dosage: 20000 INTERNATIONAL UNIT (20000 IE / WOCHE, 1 X SONNTAGS, TABLETTEN)
  9. PANTOPRAZOL                        /01263201/ [Concomitant]
     Active Substance: PANTOPRAZOLE
     Dosage: 40 MILLIGRAM (40 MG, 1?0?0?0, TABLETTEN)
  10. NEPRESOL                           /00017902/ [Concomitant]
     Active Substance: DIHYDRALAZINE SULFATE
     Dosage: 25 MILLIGRAM (25 MG, 1?0?1?1, TABLETTEN)
  11. PREDNISOLONE. [Suspect]
     Active Substance: PREDNISOLONE
     Indication: PRODUCT USED FOR UNKNOWN INDICATION
     Dosage: 5 MILLIGRAM (5 MG, 2?0?0?0, TABLETTEN)
  12. LERCANIDIPINE [Concomitant]
     Active Substance: LERCANIDIPINE
     Dosage: 10 MILLIGRAM (10 MG, 1?0?1?0, TABLETTEN)
  13. FENTANYL. [Concomitant]
     Active Substance: FENTANYL
     Dosage: 12 ?G/H, PFLASTERWECHEL ALLE 3 TAGE, PFLASTER TRANSDERMAL
     Route: 062
  14. TORASEMID [Concomitant]
     Active Substance: TORSEMIDE
     Dosage: 10 MILLIGRAM (10 MG, 1?1?0?1, TABLETTEN)
  15. APIDRA [Concomitant]
     Active Substance: INSULIN GLULISINE
     Dosage: NACH SCHEMA, FERTIGSPRITZEN
     Route: 058
  16. ALLOPURINOL. [Concomitant]
     Active Substance: ALLOPURINOL
     Dosage: 100 MILLIGRAM (100 MG, 1?0?0?09, TABLETTEN)
  17. SIMVASTATIN. [Concomitant]
     Active Substance: SIMVASTATIN
     Dosage: 20 MILLIGRAM (20 MG, 0?0?0.5?0, TABLETTEN)

REACTIONS (10)
  - Electrocardiogram QT prolonged [Recovering/Resolving]
  - Pleural effusion [Recovering/Resolving]
  - Urinary tract infection [Recovering/Resolving]
  - Oedema peripheral [Recovering/Resolving]
  - Pyrexia [Recovering/Resolving]
  - Electrolyte imbalance [Recovering/Resolving]
  - Impaired healing [Recovering/Resolving]
  - Cardiac failure [Recovering/Resolving]
  - Vomiting [Recovering/Resolving]
  - General physical health deterioration [Recovering/Resolving]
